FAERS Safety Report 8533123-6 (Version None)
Quarter: 2012Q2

REPORT INFORMATION
  Report Type: 
  Country: None (occurrence: None)
  Receive Date: 20120412
  Receipt Date: 20100208
  Transmission Date: 20120825
  Serious: Yes (Other)
  Sender: FDA-Public Use
  Company Number: PHHY2010US06532

PATIENT
  Age: 74 Year
  Sex: Male

DRUGS (3)
  1. REVLIMID [Suspect]
     Indication: MULTIPLE MYELOMA
     Dosage: 25 MG, DAILY ,ORAL
     Route: 048
     Dates: start: 20081201
  2. DRU GUSED IN DIABETES (NO INGREDIENTS/SUBSTANCES) [Concomitant]
  3. AREDIA [Suspect]
     Dosage: 90 MG, QMO

REACTIONS (4)
  - OSTEONECROSIS OF JAW [None]
  - GINGIVAL DISORDER [None]
  - FUNGAL INFECTION [None]
  - WHITE BLOOD CELL COUNT DECREASED [None]
